FAERS Safety Report 5225002-7 (Version None)
Quarter: 2007Q1

REPORT INFORMATION
  Report Type: 
  Country: None (occurrence: None)
  Receive Date: 20070126
  Receipt Date: 20070115
  Transmission Date: 20070707
  Serious: Yes (Hospitalization)
  Sender: FDA-Public Use
  Company Number: HQWYE761518JAN07

PATIENT
  Age: 53 Year
  Sex: Female

DRUGS (1)
  1. EFFEXOR [Suspect]
     Dosage: OVERDOSE 1000 MG ORAL
     Route: 048
     Dates: start: 19990601, end: 19990601

REACTIONS (4)
  - COMA [None]
  - OVERDOSE [None]
  - PNEUMONIA ASPIRATION [None]
  - RHABDOMYOLYSIS [None]
